FAERS Safety Report 4908313-1 (Version None)
Quarter: 2006Q1

REPORT INFORMATION
  Report Type: 
  Country: None (occurrence: None)
  Receive Date: 20060210
  Receipt Date: 20060130
  Transmission Date: 20060701
  Serious: Yes (Hospitalization)
  Sender: FDA-Public Use
  Company Number: PHBS2006JP01771

PATIENT

DRUGS (5)
  1. TEGRETOL [Suspect]
     Dosage: 400 MG/DAY
     Route: 048
     Dates: end: 20051201
  2. TEGRETOL [Suspect]
     Dosage: 200 MG/DAY
     Route: 048
     Dates: start: 20051201
  3. PROMOTON [Concomitant]
     Dosage: 6 DF/DAY
     Route: 048
  4. EXCEGRAN [Concomitant]
     Dosage: 4 DF/DAY
     Route: 048
  5. CLONAZEPAM [Concomitant]
     Dosage: 1 MG/DAY
     Route: 048

REACTIONS (3)
  - BRAIN OPERATION [None]
  - CEREBRAL HAEMATOMA [None]
  - HEADACHE [None]
